FAERS Safety Report 11583802 (Version 1)
Quarter: 2015Q4

REPORT INFORMATION
  Report Type: Spontaneous
  Country: US (occurrence: US)
  Receive Date: 20151001
  Receipt Date: 20151001
  Transmission Date: 20160304
  Serious: Yes (Other)
  Sender: FDA-Public Use
  Company Number: US-ROCHE-668588

PATIENT
  Age: 40 Year
  Sex: Male
  Weight: 100 kg

DRUGS (3)
  1. ACTOS [Suspect]
     Active Substance: PIOGLITAZONE HYDROCHLORIDE
     Indication: PRODUCT USED FOR UNKNOWN INDICATION
     Route: 065
  2. PEGASYS [Suspect]
     Active Substance: PEGINTERFERON ALFA-2A
     Indication: HEPATITIS C
     Route: 058
     Dates: start: 200808, end: 200910
  3. COPEGUS [Suspect]
     Active Substance: RIBAVIRIN
     Indication: HEPATITIS C
     Dosage: DOSING AMOUNT: 8 TABS/1600MG DAILY
     Route: 048

REACTIONS (6)
  - Anaemia [Unknown]
  - Headache [Unknown]
  - Deafness [Unknown]
  - White blood cell count decreased [Unknown]
  - Nausea [Unknown]
  - Blood iron increased [Unknown]

NARRATIVE: CASE EVENT DATE: 200808
